FAERS Safety Report 9630785 (Version 2)
Quarter: 2013Q4

REPORT INFORMATION
  Report Type: Spontaneous
  Country: US (occurrence: None)
  Receive Date: 20131016
  Receipt Date: 20131023
  Transmission Date: 20140711
  Serious: Yes (Hospitalization)
  Sender: FDA-Public Use
  Company Number: UTC-038760

PATIENT
  Age: 59 Year
  Sex: Female
  Weight: 51.4 kg

DRUGS (2)
  1. REMODULIN [Suspect]
     Indication: COR PULMONALE CHRONIC
     Dosage: 0.113 UG/KG, 1 IN 1 MIN)
     Route: 058
     Dates: start: 20120626
  2. REVATIO (SILDENAFIL CITRATE) (UNKNOWN) (SILDENAFIL) [Concomitant]

REACTIONS (8)
  - Nausea [None]
  - Vomiting [None]
  - Infusion site abscess [None]
  - Septic shock [None]
  - Fasciitis [None]
  - Toxic shock syndrome [None]
  - Infusion site infection [None]
  - Respiratory distress [None]
